FAERS Safety Report 16205903 (Version 1)
Quarter: 2019Q2

REPORT INFORMATION
  Report Type: Spontaneous
  Country: US (occurrence: US)
  Receive Date: 20190417
  Receipt Date: 20190417
  Transmission Date: 20190711
  Serious: No
  Sender: FDA-Public Use
  Company Number: PHHY2019US087762

PATIENT
  Age: 71 Year
  Sex: Female

DRUGS (1)
  1. LAMISIL [Suspect]
     Active Substance: TERBINAFINE HYDROCHLORIDE
     Indication: PRODUCT USED FOR UNKNOWN INDICATION
     Route: 065

REACTIONS (7)
  - Injection site discolouration [Unknown]
  - Somnolence [Unknown]
  - Extensive swelling of vaccinated limb [Recovering/Resolving]
  - Fatigue [Unknown]
  - Injection site rash [Recovering/Resolving]
  - Rash [Recovered/Resolved]
  - Injection site warmth [Recovering/Resolving]
